FAERS Safety Report 23605884 (Version 5)
Quarter: 2024Q2

REPORT INFORMATION
  Report Type: Report from Study
  Country: HR (occurrence: HR)
  Receive Date: 20240307
  Receipt Date: 20240426
  Transmission Date: 20240716
  Serious: Yes (Hospitalization)
  Sender: FDA-Public Use
  Company Number: HR-BAXTER-2024BAX013972

PATIENT
  Age: 60 Year
  Sex: Male
  Weight: 60 kg

DRUGS (24)
  1. CYCLOPHOSPHAMIDE [Suspect]
     Active Substance: CYCLOPHOSPHAMIDE
     Indication: Diffuse large B-cell lymphoma
     Dosage: 1300 MG, EVERY 3 WEEKS
     Route: 042
     Dates: start: 20240126
  2. EPCORITAMAB [Suspect]
     Active Substance: EPCORITAMAB
     Indication: Diffuse large B-cell lymphoma
     Dosage: 0.16 MG PRIMING DOSE DOSE; C1, D1, TOTAL
     Route: 058
     Dates: start: 20240126, end: 20240126
  3. EPCORITAMAB [Suspect]
     Active Substance: EPCORITAMAB
     Dosage: 0.8 MG INTERMEDIATE DOSE; C1, D8, TOTAL
     Route: 058
     Dates: start: 20240202, end: 20240202
  4. EPCORITAMAB [Suspect]
     Active Substance: EPCORITAMAB
     Dosage: 48 MG FULL DOSE; C1, D15 AND C2, D1, EVERY 1 WEEKS, ONGOING
     Route: 058
     Dates: start: 20240209
  5. RITUXIMAB [Suspect]
     Active Substance: RITUXIMAB
     Indication: Diffuse large B-cell lymphoma
     Dosage: 690 MG, EVERY 3 WEEKS, ONGOING
     Route: 042
     Dates: start: 20240126
  6. VINCRISTINE [Suspect]
     Active Substance: VINCRISTINE
     Indication: Diffuse large B-cell lymphoma
     Dosage: 2 MG, EVERY 3 WEEKS, ONGOING
     Route: 042
     Dates: start: 20240126
  7. DOXORUBICIN [Suspect]
     Active Substance: DOXORUBICIN
     Indication: Diffuse large B-cell lymphoma
     Dosage: 89 MG, EVERY 3 WEEKS, ONGOING
     Route: 042
     Dates: start: 20240126
  8. PREDNISONE [Suspect]
     Active Substance: PREDNISONE
     Indication: Diffuse large B-cell lymphoma
     Dosage: 100 MG DAILY C1-6, DAY 1-5, EVERY 1 DAYS, ONGOING
     Route: 048
     Dates: start: 20240126
  9. LOSARTAN [Concomitant]
     Active Substance: LOSARTAN
     Indication: Hypertension
     Dosage: 50 MG, EVERY 1 DAYS
     Route: 065
     Dates: start: 20221223
  10. PANTOPRAZOLE SODIUM [Concomitant]
     Active Substance: PANTOPRAZOLE SODIUM
     Indication: Prophylaxis against gastrointestinal ulcer
     Dosage: 40 MG, EVERY 1 DAYS
     Route: 065
     Dates: start: 20240111
  11. METOCLOPRAMIDE [Concomitant]
     Active Substance: METOCLOPRAMIDE
     Indication: Antiemetic supportive care
     Dosage: 10 MG, EVERY 1 DAYS
     Route: 065
     Dates: start: 20240111
  12. KETOPROFEN [Concomitant]
     Active Substance: KETOPROFEN
     Indication: Cancer pain
     Dosage: 100 MG, EVERY 1 DAYS
     Route: 065
     Dates: start: 20240111
  13. ALLOPURINOL [Concomitant]
     Active Substance: ALLOPURINOL
     Indication: Prophylaxis
     Dosage: 300 MG, EVERY 1 DAYS
     Route: 065
     Dates: start: 20240125
  14. CIPROFLOXACIN [Concomitant]
     Active Substance: CIPROFLOXACIN
     Indication: Antibiotic prophylaxis
     Dosage: 500 MG, 2/DAYS
     Route: 065
     Dates: start: 20240129
  15. SULFAMETHOXAZOLE AND TRIMETHOPRIM [Concomitant]
     Active Substance: SULFAMETHOXAZOLE\TRIMETHOPRIM
     Indication: Antifungal prophylaxis
     Dosage: 800 MG + 160 MG, EVERY 1 DAYS
     Route: 065
     Dates: start: 20240129
  16. ACYCLOVIR [Concomitant]
     Active Substance: ACYCLOVIR
     Indication: Antiviral prophylaxis
     Dosage: 400 MG, 3/DAYS
     Route: 065
     Dates: start: 20240129
  17. TRAMADOL [Concomitant]
     Active Substance: TRAMADOL\TRAMADOL HYDROCHLORIDE
     Indication: Cancer pain
     Dosage: 50 MG, EVERY 1 DAYS
     Route: 065
     Dates: start: 20240202
  18. TIANEPTINE [Concomitant]
     Active Substance: TIANEPTINE
     Indication: Anxiety
     Dosage: 12.5 MG, 3/DAYS
     Route: 065
     Dates: start: 20240202
  19. ALPRAZOLAM [Concomitant]
     Active Substance: ALPRAZOLAM
     Indication: Anxiety
     Dosage: 0.25 MG, EVERY 1 DAYS
     Route: 065
     Dates: start: 20240202
  20. DEXAMETHASONE [Concomitant]
     Active Substance: DEXAMETHASONE
     Indication: Prophylaxis
     Dosage: 15 MG, AS NECESSARY
     Route: 065
     Dates: start: 20240202
  21. ACETAMINOPHEN [Concomitant]
     Active Substance: ACETAMINOPHEN
     Indication: Antipyresis
     Dosage: 1000 MG, EVERY 1 WEEKS
     Route: 065
     Dates: start: 20240126
  22. CHLOROPYRAMINE [Concomitant]
     Active Substance: CHLOROPYRAMINE
     Indication: Antiallergic therapy
     Dosage: 20 MG, EVERY 1 WEEKS
     Route: 065
     Dates: start: 20240126
  23. LEVOFLOXACIN [Concomitant]
     Active Substance: LEVOFLOXACIN
     Indication: Evidence based treatment
     Dosage: 500 MG, 2/DAYS
     Route: 065
     Dates: start: 20240210, end: 20240220
  24. LEVOFLOXACIN [Concomitant]
     Active Substance: LEVOFLOXACIN
     Indication: Antibiotic therapy

REACTIONS (1)
  - Vertigo positional [Recovered/Resolved]

NARRATIVE: CASE EVENT DATE: 20240220
